FAERS Safety Report 6775868-4 (Version None)
Quarter: 2010Q2

REPORT INFORMATION
  Report Type: 
  Country: None (occurrence: None)
  Receive Date: 20100617
  Receipt Date: 20100610
  Transmission Date: 20101027
  Serious: Yes (Other)
  Sender: FDA-Public Use
  Company Number: AU-ELI_LILLY_AND_COMPANY-AU201004004140

PATIENT
  Sex: Female

DRUGS (2)
  1. GEMZAR [Suspect]
     Indication: NON-SMALL CELL LUNG CANCER
     Dosage: 1590 MG, UNKNOWN
     Route: 065
     Dates: start: 20100330
  2. CARBOPLATIN [Concomitant]
     Dosage: 420 G, UNK
     Dates: start: 20100323

REACTIONS (1)
  - THROMBOPHLEBITIS [None]
